FAERS Safety Report 16673420 (Version 5)
Quarter: 2025Q2

REPORT INFORMATION
  Report Type: Spontaneous
  Country: US (occurrence: US)
  Receive Date: 20190806
  Receipt Date: 20250620
  Transmission Date: 20250716
  Serious: No
  Sender: PFIZER
  Company Number: US-PFIZER INC-2019334317

PATIENT
  Age: 74 Year
  Sex: Female
  Weight: 61.23 kg

DRUGS (20)
  1. METHOTREXATE SODIUM [Suspect]
     Active Substance: METHOTREXATE SODIUM
     Indication: Rheumatoid arthritis
     Dosage: 7 MG, WEEKLY
  2. METHOTREXATE SODIUM [Suspect]
     Active Substance: METHOTREXATE SODIUM
     Dosage: 8 MG (0.8CC), WEEKLY
     Route: 058
     Dates: start: 20081209, end: 20190724
  3. METHOTREXATE SODIUM [Suspect]
     Active Substance: METHOTREXATE SODIUM
     Route: 058
     Dates: start: 20110424, end: 202204
  4. XELJANZ XR [Concomitant]
     Active Substance: TOFACITINIB CITRATE
     Dosage: 11 MG, 1X/DAY (1 TAB(S) ORALLY ONCE A DAY,90 DAYS)
     Route: 048
  5. ROSUVASTATIN [Concomitant]
     Active Substance: ROSUVASTATIN
     Dosage: 5 MG, 1X/DAY (1 TAB(S) ORALLY ONCE A DAY)
     Route: 048
  6. SERTRALINE [Concomitant]
     Active Substance: SERTRALINE HYDROCHLORIDE
     Dosage: 50 MG, 1X/DAY
     Route: 048
  7. HERBALS\TURMERIC [Concomitant]
     Active Substance: HERBALS\TURMERIC
     Dosage: 500 MG, 1X/DAY (1 CAP(S) ORALLY ONCE A DAY)
     Route: 048
  8. HERBALS\TURMERIC [Concomitant]
     Active Substance: HERBALS\TURMERIC
     Dosage: UNK, 1X/DAY (ONCE A DAY)
  9. LOSARTAN [Concomitant]
     Active Substance: LOSARTAN
     Dosage: 100 MG, 1X/DAY (1 TAB(S) ORALLY ONCE A DAY)
     Route: 048
  10. LATANOPROST [Concomitant]
     Active Substance: LATANOPROST
     Dosage: UNK, 1X/DAY (0.005% 1 GTT IN EACH EYE ONCE A DAY (IN THE EVENING)
     Route: 047
  11. DOCUSATE SODIUM [Concomitant]
     Active Substance: DOCUSATE SODIUM
     Dosage: 100 MG, 1X/DAY (100 MG 2 TAB(S) ORALLY ONCE A DAY AT BEDTIME)
  12. VITAMIN D3 [Concomitant]
     Active Substance: CHOLECALCIFEROL
     Dosage: UNK, 1X/DAY (1000 INTL UNITS 1 TAB(S) ORALLY ONCE A DAY)
     Route: 048
  13. FISH OIL [Concomitant]
     Active Substance: FISH OIL
     Dosage: 1000 MG, 1X/DAY (1000 MG 1 CAP PO ONCE A DAY)
     Route: 048
  14. TUMS CHEWIES [Concomitant]
  15. OMEPRAZOLE [Concomitant]
     Active Substance: OMEPRAZOLE
     Dosage: 20 MG, 1X/DAY (20 MG 2 CAP(S) ORALLY ONCE A DAY)
     Route: 048
  16. ASPIRIN [Concomitant]
     Active Substance: ASPIRIN
     Dosage: 81 MG, 1X/DAY (81 MG 1 TAB(S) ORALLY ONCE A DAY)
     Route: 048
  17. MAG 200 [Concomitant]
     Dosage: UNK, 1X/DAY
  18. TYLENOL [Concomitant]
     Active Substance: ACETAMINOPHEN
     Dosage: 325 MG, EVERY 4 HRS (325 MG 2 TAB(S) ORALLY EVERY 4 HOURS)
     Route: 048
  19. LORATADINE [Concomitant]
     Active Substance: LORATADINE
     Dosage: 10 MG, 1X/DAY (10 MG 1 TAB(S) ORALLY ONCE A DAY)
     Route: 048
  20. HYDROCHLOROTHIAZIDE [Concomitant]
     Active Substance: HYDROCHLOROTHIAZIDE
     Dosage: 25 MG, 1X/DAY (25 MG 1 TAB(S) ORALLY ONCE A DAY)
     Route: 048

REACTIONS (3)
  - Illness [Unknown]
  - Nausea [Recovered/Resolved]
  - Off label use [Unknown]

NARRATIVE: CASE EVENT DATE: 20220401
